FAERS Safety Report 12729804 (Version 1)
Quarter: 2016Q3

REPORT INFORMATION
  Report Type: Other
  Country: None (occurrence: None)
  Receive Date: 20160909
  Receipt Date: 20160909
  Transmission Date: 20161109
  Serious: Yes (Other)
  Sender: FDA-Public Use
  Company Number: EU-LABORATOIRE HRA PHARMA-1057226

PATIENT
  Age: 17 Year
  Sex: Female

DRUGS (1)
  1. ELLA [Suspect]
     Active Substance: ULIPRISTAL ACETATE
     Route: 048
     Dates: start: 20160801, end: 20160801

REACTIONS (3)
  - Incorrect dosage administered [None]
  - Menstrual disorder [Not Recovered/Not Resolved]
  - Pelvic discomfort [Not Recovered/Not Resolved]

NARRATIVE: CASE EVENT DATE: 20160801
